FAERS Safety Report 7049332 (Version 3)
Quarter: 2015Q3

REPORT INFORMATION
  Report Type: Report from Study
  Country: JP (occurrence: JP)
  Receive Date: 20090714
  Receipt Date: 20150902
  Transmission Date: 20151125
  Serious: Yes (Hospitalization)
  Sender: FDA-Public Use
  Company Number: JP-ROCHE-604171

PATIENT
  Age: 74 Year
  Sex: Female
  Weight: 68 kg

DRUGS (5)
  1. RISEDRONIC ACID [Suspect]
     Active Substance: RISEDRONIC ACID
     Indication: OSTEOPOROSIS
     Route: 048
     Dates: start: 20070530
  2. JUVELA N [Concomitant]
     Active Substance: TOCOPHERYL NICOTINATE, D-.ALPHA.
     Route: 048
     Dates: start: 20080326, end: 20090626
  3. METHYCOBAL [Concomitant]
     Active Substance: METHYLCOBALAMIN
     Route: 048
  4. METHYCOBAL [Concomitant]
     Active Substance: METHYLCOBALAMIN
     Route: 048
     Dates: start: 20080326, end: 20090626
  5. PLACEBO [Suspect]
     Active Substance: UNSPECIFIED INGREDIENT
     Indication: OSTEOPOROSIS
     Dosage: ROUTE: INTRAVENOUS (NOT OTHERWISE SPECIFIED). NOTE: UNCERTAINTY
     Route: 042
     Dates: start: 20070530

REACTIONS (1)
  - Carpal tunnel syndrome [Recovered/Resolved]

NARRATIVE: CASE EVENT DATE: 20080613
